FAERS Safety Report 22185345 (Version 2)
Quarter: 2023Q2

REPORT INFORMATION
  Report Type: Spontaneous
  Country: US (occurrence: US)
  Receive Date: 20230407
  Receipt Date: 20230511
  Transmission Date: 20230722
  Serious: No
  Sender: FDA-Public Use
  Company Number: US-ELI_LILLY_AND_COMPANY-US202304002066

PATIENT
  Sex: Female

DRUGS (9)
  1. MOUNJARO [Suspect]
     Active Substance: TIRZEPATIDE
     Indication: Insulin resistance
     Dosage: 5 MG, UNKNOWN
  2. MOUNJARO [Suspect]
     Active Substance: TIRZEPATIDE
     Indication: Insulin resistance
     Dosage: 5 MG, UNKNOWN
  3. MOUNJARO [Suspect]
     Active Substance: TIRZEPATIDE
     Indication: Blood cholesterol increased
  4. MOUNJARO [Suspect]
     Active Substance: TIRZEPATIDE
     Indication: Blood cholesterol increased
  5. MOUNJARO [Suspect]
     Active Substance: TIRZEPATIDE
     Indication: Lipoedema
  6. MOUNJARO [Suspect]
     Active Substance: TIRZEPATIDE
     Indication: Lipoedema
  7. MOUNJARO [Suspect]
     Active Substance: TIRZEPATIDE
     Indication: Angiopathy
  8. MOUNJARO [Suspect]
     Active Substance: TIRZEPATIDE
     Indication: Angiopathy
  9. MOUNJARO [Suspect]
     Active Substance: TIRZEPATIDE
     Indication: Product used for unknown indication
     Dosage: UNK, UNKNOWN
     Route: 065

REACTIONS (7)
  - Allergy to metals [Unknown]
  - Injection site pain [Unknown]
  - Injection site haemorrhage [Unknown]
  - Injection site pruritus [Unknown]
  - Injection site bruising [Unknown]
  - Off label use [Unknown]
  - Incorrect dose administered [Unknown]
